FAERS Safety Report 13131058 (Version 1)
Quarter: 2017Q1

REPORT INFORMATION
  Report Type: Spontaneous
  Country: US (occurrence: US)
  Receive Date: 20170119
  Receipt Date: 20170119
  Transmission Date: 20170428
  Serious: Yes (Other)
  Sender: FDA-Public Use
  Company Number: US-FRESENIUS KABI-FK201700484

PATIENT
  Age: 43 Year
  Sex: Male

DRUGS (1)
  1. CLADRIBINE (MANUFACTURER UNKNOWN) [Suspect]
     Active Substance: CLADRIBINE
     Indication: SYSTEMIC LUPUS ERYTHEMATOSUS
     Route: 041

REACTIONS (1)
  - Cytomegalovirus infection [Recovered/Resolved]
